FAERS Safety Report 6376237-1 (Version None)
Quarter: 2009Q3

REPORT INFORMATION
  Report Type: 
  Country: None (occurrence: None)
  Receive Date: 20090925
  Receipt Date: 20090916
  Transmission Date: 20100115
  Serious: Yes (Hospitalization)
  Sender: FDA-Public Use
  Company Number: US-BIOGENIDEC-2009BI021825

PATIENT
  Age: 51 Year
  Sex: Male

DRUGS (1)
  1. TYSABRI [Suspect]
     Indication: MULTIPLE SCLEROSIS
     Route: 042
     Dates: start: 20090602

REACTIONS (8)
  - ERYTHEMA [None]
  - HAEMATOMA [None]
  - HYPERSENSITIVITY [None]
  - PAIN IN EXTREMITY [None]
  - PYREXIA [None]
  - STAPHYLOCOCCAL INFECTION [None]
  - SWELLING [None]
  - THROMBOCYTOPENIA [None]
